FAERS Safety Report 18755120 (Version 1)
Quarter: 2021Q1

REPORT INFORMATION
  Report Type: Spontaneous
  Country: US (occurrence: US)
  Receive Date: 20210114
  Receipt Date: 20210114
  Transmission Date: 20210419
  Serious: Yes (Death)
  Sender: FDA-Public Use
  Company Number: None

PATIENT
  Age: 61 Year
  Sex: Male

DRUGS (15)
  1. CLONIDINE. [Concomitant]
     Active Substance: CLONIDINE
  2. DEXILANT [Concomitant]
     Active Substance: DEXLANSOPRAZOLE
  3. OFLOXACIN. [Concomitant]
     Active Substance: OFLOXACIN
  4. DICLOFENAC GEL [Concomitant]
     Active Substance: DICLOFENAC
  5. LINZESS [Concomitant]
     Active Substance: LINACLOTIDE
  6. SIMVASTATIN. [Concomitant]
     Active Substance: SIMVASTATIN
  7. NOVOLOG [Concomitant]
     Active Substance: INSULIN ASPART
  8. VASCEPA [Concomitant]
     Active Substance: ICOSAPENT ETHYL
  9. BASAGLAR [Concomitant]
     Active Substance: INSULIN GLARGINE
  10. CELLCEPT [Suspect]
     Active Substance: MYCOPHENOLATE MOFETIL\MYCOPHENOLATE MOFETIL HYDROCHLORIDE
     Indication: LIVER TRANSPLANT
     Route: 048
     Dates: start: 20170203, end: 20210108
  11. CALC ACETATE [Concomitant]
     Active Substance: CALCIUM ACETATE
  12. EZETIMBE [Concomitant]
     Active Substance: EZETIMIBE
  13. NIFEDIPINE. [Concomitant]
     Active Substance: NIFEDIPINE
  14. HYDRALAZINE [Concomitant]
     Active Substance: HYDRALAZINE HYDROCHLORIDE
  15. LIDO/PRILOCN CRE [Concomitant]

REACTIONS (1)
  - Death [None]

NARRATIVE: CASE EVENT DATE: 20210108
